FAERS Safety Report 16226788 (Version 3)
Quarter: 2020Q2

REPORT INFORMATION
  Report Type: Spontaneous
  Country: US (occurrence: US)
  Receive Date: 20190423
  Receipt Date: 20200410
  Transmission Date: 20200713
  Serious: No
  Sender: FDA-Public Use
  Company Number: US-TEVA-2019-US-1032763

PATIENT
  Sex: Female

DRUGS (1)
  1. PERMETHRIN CREAM 5% [Suspect]
     Active Substance: PERMETHRIN
     Indication: ACARODERMATITIS
     Route: 065
     Dates: start: 201810

REACTIONS (2)
  - Product prescribing error [Unknown]
  - Product use in unapproved indication [Unknown]
